FAERS Safety Report 7410046-7 (Version None)
Quarter: 2011Q2

REPORT INFORMATION
  Report Type: 
  Country: None (occurrence: None)
  Receive Date: 20110412
  Receipt Date: 20110407
  Transmission Date: 20111010
  Serious: Yes (Other)
  Sender: FDA-Public Use
  Company Number: BR-PFIZER INC-2011025492

PATIENT
  Age: 44 Year
  Sex: Female
  Weight: 74 kg

DRUGS (9)
  1. RIVOTRIL [Concomitant]
     Indication: DEPRESSION
  2. CHAMPIX [Suspect]
     Indication: TOBACCO USER
     Dosage: UNK
     Route: 048
     Dates: start: 20110107, end: 20110406
  3. CLONAZEPAM [Suspect]
     Dosage: UNK
     Route: 060
  4. CHAMPIX [Suspect]
     Indication: SMOKING CESSATION THERAPY
     Dosage: UNK
     Dates: start: 20110125
  5. CARBAMAZEPINE [Concomitant]
     Indication: DEPRESSION
     Dosage: 200 MG 2 TABLETS AT NIGHT AND 1 IN THE MORNING
     Dates: start: 20090101
  6. EXODUS [Concomitant]
     Dosage: 10 MG, 1X/DAY
     Dates: start: 20110101
  7. CARBAMAZEPINE [Concomitant]
     Indication: ANXIETY
     Dosage: 800 MG, DAILY
  8. RIVOTRIL [Concomitant]
     Indication: ANXIETY
     Dosage: 2 MG, AT NIGHT
  9. EXODUS [Concomitant]
     Indication: AFFECTIVE DISORDER
     Dosage: 10 MG, 1X/DAY
     Dates: start: 20110101

REACTIONS (2)
  - DEPRESSED MOOD [None]
  - LIVER DISORDER [None]
